FAERS Safety Report 6337810-X (Version None)
Quarter: 2009Q3

REPORT INFORMATION
  Report Type: 
  Country: None (occurrence: None)
  Receive Date: 20090902
  Receipt Date: 20090825
  Transmission Date: 20100115
  Serious: Yes (Hospitalization)
  Sender: FDA-Public Use
  Company Number: A0803628A

PATIENT
  Age: 64 Year
  Sex: Male
  Weight: 104.5 kg

DRUGS (5)
  1. AVANDIA [Suspect]
     Indication: DIABETES MELLITUS
     Dosage: 4MG PER DAY
     Route: 048
     Dates: start: 20050101, end: 20070524
  2. MAXZIDE [Concomitant]
  3. ATENOLOL [Concomitant]
  4. LOVASTATIN [Concomitant]
  5. NIASPAN [Concomitant]

REACTIONS (1)
  - MYOCARDIAL INFARCTION [None]
